FAERS Safety Report 6128885-1 (Version None)
Quarter: 2009Q1

REPORT INFORMATION
  Report Type: 
  Country: None (occurrence: None)
  Receive Date: 20090320
  Receipt Date: 20090313
  Transmission Date: 20090719
  Serious: Yes (Hospitalization)
  Sender: FDA-Public Use
  Company Number: 2009SP000445

PATIENT
  Age: 52 Year
  Sex: Male
  Weight: 58.514 kg

DRUGS (11)
  1. BLINDED SCH 503034 (S-P) (HCV PROTEASE INHIBITOR) [Suspect]
     Indication: HEPATITIS C
     Dosage: 800 MG; Q8H; PO
     Route: 048
     Dates: start: 20081203
  2. BLINDED SCH 503034 (S-P) (HCV PROTEASE INHIBITOR) [Suspect]
  3. BLINDED SCH 503034 (S-P) (HCV PROTEASE INHIBITOR) [Suspect]
  4. BLINDED SCH 503034 (S-P) (HCV PROTEASE INHIBITOR) [Suspect]
  5. PEG-INTRON [Suspect]
     Indication: HEPATITIS C
     Dosage: 80 MCG; QW; SC
     Route: 058
     Dates: start: 20081105
  6. RIBAVIRIN [Suspect]
     Indication: HEPATITIS C
     Dosage: 800 MG; QD; PO
     Route: 048
     Dates: start: 20081105
  7. CHLORDIAZEPOXIDE [Concomitant]
  8. ESCITALOPRAM [Concomitant]
  9. ALPRAZOLAM [Concomitant]
  10. ACETAMINOPHEN [Concomitant]
  11. IBUPROFEN [Concomitant]

REACTIONS (2)
  - KLEBSIELLA INFECTION [None]
  - PERIRECTAL ABSCESS [None]
